FAERS Safety Report 24120504 (Version 3)
Quarter: 2024Q3

REPORT INFORMATION
  Report Type: Spontaneous
  Country: AU (occurrence: AU)
  Receive Date: 20240722
  Receipt Date: 20240923
  Transmission Date: 20241017
  Serious: Yes (Death, Life-Threatening, Other)
  Sender: PFIZER
  Company Number: AU-PFIZER INC-202400219049

PATIENT
  Age: 8 Decade
  Sex: Female

DRUGS (3)
  1. METHYLPREDNISOLONE SODIUM SUCCINATE [Suspect]
     Active Substance: METHYLPREDNISOLONE SODIUM SUCCINATE
     Indication: Capillary leak syndrome
     Dosage: 1 G, DAILY(HIGH-DOSE)
     Route: 042
  2. INFLIXIMAB [Suspect]
     Active Substance: INFLIXIMAB
     Indication: Capillary leak syndrome
     Dosage: UNK
  3. HUMAN IMMUNOGLOBULIN G [Suspect]
     Active Substance: HUMAN IMMUNOGLOBULIN G
     Indication: Capillary leak syndrome
     Dosage: 2 G/KG
     Route: 042

REACTIONS (8)
  - Acute hepatic failure [Fatal]
  - Treatment failure [Fatal]
  - Condition aggravated [Fatal]
  - Hypotension [Fatal]
  - Hypoxia [Fatal]
  - Coagulopathy [Fatal]
  - Pleural effusion [Fatal]
  - Off label use [Unknown]
